FAERS Safety Report 23945690 (Version 2)
Quarter: 2024Q3

REPORT INFORMATION
  Report Type: Report from Study
  Country: CN (occurrence: CN)
  Receive Date: 20240606
  Receipt Date: 20240722
  Transmission Date: 20241017
  Serious: Yes (Other)
  Sender: ROCHE
  Company Number: CN-ROCHE-2244133

PATIENT
  Age: 38 Year
  Sex: Female
  Weight: 50.0 kg

DRUGS (1)
  1. AVASTIN [Suspect]
     Active Substance: BEVACIZUMAB
     Indication: Colon cancer
     Route: 041
     Dates: start: 20170722

REACTIONS (6)
  - Laboratory test abnormal [Unknown]
  - Dizziness [Unknown]
  - Hypoaesthesia [Unknown]
  - Hepatic lesion [Not Recovered/Not Resolved]
  - Hepatectomy [Unknown]
  - Liver ablation [Unknown]

NARRATIVE: CASE EVENT DATE: 20171213
